FAERS Safety Report 4301254-2 (Version None)
Quarter: 2004Q1

REPORT INFORMATION
  Report Type: 
  Country: None (occurrence: None)
  Receive Date: 20040220
  Receipt Date: 20040220
  Transmission Date: 20041129
  Serious: Yes (Death, Hospitalization, Disabling)
  Sender: FDA-Public Use
  Company Number: None

PATIENT
  Age: 57 Year
  Sex: Male

DRUGS (3)
  1. PEG-INTRON [Suspect]
     Indication: HEPATITIS C
     Dosage: 150 MCG ONCE/WEEK
     Dates: start: 20030101, end: 20030201
  2. PEGASYS [Suspect]
     Indication: HEPATITIS C
     Dosage: 180 MCG ONCE /WEEK
     Dates: start: 20030301
  3. REBETOL [Concomitant]

REACTIONS (2)
  - GENERAL PHYSICAL HEALTH DETERIORATION [None]
  - TREMOR [None]
